FAERS Safety Report 19690337 (Version 2)
Quarter: 2021Q4

REPORT INFORMATION
  Report Type: Spontaneous
  Country: US (occurrence: US)
  Receive Date: 20210812
  Receipt Date: 20211006
  Transmission Date: 20220303
  Serious: No
  Sender: FDA-Public Use
  Company Number: US-GSKCCFUS-CASE-01131711_AE-66622

PATIENT
  Age: 61 Year
  Sex: Male
  Weight: 84 kg

DRUGS (1)
  1. ANORO ELLIPTA [Suspect]
     Active Substance: UMECLIDINIUM BROMIDE\VILANTEROL TRIFENATATE
     Indication: Chronic obstructive pulmonary disease
     Dosage: 1 PUFF(S), QD,62.5 MCG/25 MCG
     Route: 055
     Dates: start: 20191122, end: 20210824

REACTIONS (3)
  - Chronic obstructive pulmonary disease [Recovered/Resolved]
  - Product dose omission issue [Recovered/Resolved]
  - Social problem [Recovered/Resolved]

NARRATIVE: CASE EVENT DATE: 20210101
